FAERS Safety Report 8629428 (Version 2)
Quarter: 2013Q4

REPORT INFORMATION
  Report Type: Spontaneous
  Country: US (occurrence: US)
  Receive Date: 20120622
  Receipt Date: 20131011
  Transmission Date: 20140711
  Serious: Yes (Hospitalization, Disabling)
  Sender: FDA-Public Use
  Company Number: US-ASTRAZENECA-2012SE35586

PATIENT
  Age: 60 Year
  Sex: Female
  Weight: 74.4 kg

DRUGS (5)
  1. NEXIUM [Suspect]
     Indication: GASTROOESOPHAGEAL REFLUX DISEASE
     Dosage: 2 TIMES A DAY
     Route: 048
     Dates: start: 19950808, end: 200906
  2. PRILOSEC [Suspect]
     Indication: GASTROOESOPHAGEAL REFLUX DISEASE
     Dosage: 2 TIMES A DAY
     Route: 048
  3. ZANTAC [Concomitant]
  4. TAGAMENT OTC [Concomitant]
  5. AVANDIA [Concomitant]

REACTIONS (14)
  - Arthropathy [Unknown]
  - Myocardial infarction [Unknown]
  - Back disorder [Unknown]
  - Head discomfort [Unknown]
  - Osteoporosis [Unknown]
  - Multiple fractures [Unknown]
  - Finger deformity [Unknown]
  - Arthritis [Unknown]
  - Diabetes mellitus [Unknown]
  - Osteomalacia [Unknown]
  - Rheumatoid arthritis [Unknown]
  - Vitamin D deficiency [Unknown]
  - Bone density decreased [Unknown]
  - Depression [Unknown]
